FAERS Safety Report 10561709 (Version 2)
Quarter: 2014Q4

REPORT INFORMATION
  Report Type: Report from Study
  Country: CA (occurrence: CA)
  Receive Date: 20141103
  Receipt Date: 20141103
  Transmission Date: 20150529
  Serious: Yes (Hospitalization)
  Sender: FDA-Public Use
  Company Number: CA-ABBVIE-14K-028-1292961-00

PATIENT
  Age: 55 Year
  Sex: Female
  Weight: 52 kg

DRUGS (3)
  1. IMURAN [Concomitant]
     Active Substance: AZATHIOPRINE
     Indication: PRODUCT USED FOR UNKNOWN INDICATION
     Dosage: 150 (NOS) DAILY
     Route: 048
  2. HUMIRA [Suspect]
     Active Substance: ADALIMUMAB
     Indication: CROHN^S DISEASE
     Route: 058
     Dates: start: 20121129, end: 201407
  3. HUMIRA [Suspect]
     Active Substance: ADALIMUMAB
     Route: 058
     Dates: start: 20140920

REACTIONS (9)
  - Nervousness [Unknown]
  - Pneumonia [Recovered/Resolved]
  - Dyslipidaemia [Unknown]
  - Palpitations [Unknown]
  - Vomiting [Unknown]
  - Tachycardia [Unknown]
  - Clostridium difficile infection [Recovered/Resolved]
  - Ileal stenosis [Recovered/Resolved]
  - Intestinal fibrosis [Recovered/Resolved]

NARRATIVE: CASE EVENT DATE: 2014
